FAERS Safety Report 6225742-7 (Version None)
Quarter: 2009Q2

REPORT INFORMATION
  Report Type: 
  Country: None (occurrence: None)
  Receive Date: 20090612
  Receipt Date: 20090520
  Transmission Date: 20091009
  Serious: No
  Sender: FDA-Public Use
  Company Number: US-ABBOTT-09P-163-0569771-00

PATIENT
  Sex: Female
  Weight: 116.22 kg

DRUGS (9)
  1. HUMIRA [Suspect]
     Indication: RHEUMATOID ARTHRITIS
     Route: 058
     Dates: start: 20050101, end: 20070101
  2. HUMIRA [Suspect]
     Route: 058
     Dates: start: 20070501
  3. HUMIRA [Suspect]
     Route: 058
     Dates: start: 20090505
  4. HUMIRA [Suspect]
     Indication: RHEUMATOID ARTHRITIS
     Dosage: 20 MG EVERY WEEK
     Dates: start: 20090505
  5. SYNTHROID [Concomitant]
     Indication: HYPOTHYROIDISM
  6. TOPROL-XL [Concomitant]
     Indication: HYPERTENSION
  7. VERAPAMIL [Concomitant]
     Indication: HYPERTENSION
  8. ALLEGRA [Concomitant]
     Indication: HYPERSENSITIVITY
  9. POTASSIUM CHLORIDE [Concomitant]
     Indication: HYPOKALAEMIA

REACTIONS (11)
  - BLOOD POTASSIUM DECREASED [None]
  - DEHYDRATION [None]
  - DIARRHOEA [None]
  - GRIP STRENGTH DECREASED [None]
  - INCORRECT DOSE ADMINISTERED [None]
  - INFLAMMATION [None]
  - INFLUENZA [None]
  - OEDEMA PERIPHERAL [None]
  - PAIN [None]
  - RHEUMATOID ARTHRITIS [None]
  - VOMITING [None]
